FAERS Safety Report 4334518-7 (Version None)
Quarter: 2004Q2

REPORT INFORMATION
  Report Type: 
  Country: None (occurrence: None)
  Receive Date: 20040407
  Receipt Date: 20040325
  Transmission Date: 20050107
  Serious: Yes (Hospitalization)
  Sender: FDA-Public Use
  Company Number: FR-GLAXOSMITHKLINE-B0327923A

PATIENT
  Age: 51 Year
  Sex: Male

DRUGS (5)
  1. EPIVIR [Suspect]
     Indication: HIV INFECTION
     Dosage: 300MG PER DAY
     Route: 048
     Dates: start: 20030901
  2. MALOCIDE [Suspect]
     Dosage: 50MG PER DAY
     Route: 048
     Dates: start: 20020101
  3. DALACINE [Suspect]
     Dosage: 2CAP TWICE PER DAY
     Route: 048
     Dates: start: 20020101
  4. VIRAMUNE [Suspect]
     Indication: HIV INFECTION
     Dosage: 400MG PER DAY
     Route: 048
     Dates: start: 20030901
  5. VIREAD [Suspect]
     Indication: HIV INFECTION
     Dosage: 1UNIT PER DAY
     Route: 048
     Dates: start: 20030901

REACTIONS (5)
  - ANAEMIA MEGALOBLASTIC [None]
  - EOSINOPHILIA [None]
  - PANCYTOPENIA [None]
  - PRURITUS [None]
  - RASH MACULO-PAPULAR [None]
